FAERS Safety Report 24254229 (Version 1)
Quarter: 2024Q3

REPORT INFORMATION
  Report Type: Spontaneous
  Country: US (occurrence: None)
  Receive Date: 20240826
  Receipt Date: 20240826
  Transmission Date: 20241016
  Serious: No
  Sender: Public
  Company Number: None

PATIENT
  Age: 50 Year
  Sex: Female

DRUGS (2)
  1. GLIPIZIDE [Suspect]
     Active Substance: GLIPIZIDE
  2. GLIPIZIDE [Suspect]
     Active Substance: GLIPIZIDE

REACTIONS (8)
  - Headache [None]
  - Nausea [None]
  - Vomiting [None]
  - Diarrhoea [None]
  - Pyrexia [None]
  - Oropharyngeal pain [None]
  - Product prescribing error [None]
  - Product prescribing issue [None]
